FAERS Safety Report 20425084 (Version 1)
Quarter: 2022Q1

REPORT INFORMATION
  Report Type: Report from Study
  Country: CA (occurrence: CA)
  Receive Date: 20220204
  Receipt Date: 20220204
  Transmission Date: 20220424
  Serious: No
  Sender: FDA-Public Use
  Company Number: CA-EXELIXIS-CABO-21036741

PATIENT
  Sex: Female

DRUGS (20)
  1. CABOMETYX [Suspect]
     Active Substance: CABOZANTINIB S-MALATE
     Indication: Renal cell carcinoma
     Dosage: 40 MG, QD
     Route: 048
     Dates: start: 20200219
  2. CABOMETYX [Suspect]
     Active Substance: CABOZANTINIB S-MALATE
     Dosage: 60 MG, QD
     Route: 048
  3. CABOMETYX [Suspect]
     Active Substance: CABOZANTINIB S-MALATE
     Dosage: 40 MG, QD
     Route: 048
  4. VITAMIN B12 [Concomitant]
     Active Substance: CYANOCOBALAMIN
  5. ZOPICLONE [Concomitant]
     Active Substance: ZOPICLONE
  6. LOPERAMIDE [Concomitant]
     Active Substance: LOPERAMIDE
  7. ROSUVASTATIN [Concomitant]
     Active Substance: ROSUVASTATIN
  8. PERINDOPRIL [Concomitant]
     Active Substance: PERINDOPRIL
  9. PROCTOL [Concomitant]
  10. VITAMINS [Concomitant]
     Active Substance: VITAMINS
  11. BETAHISTINE [Concomitant]
     Active Substance: BETAHISTINE
  12. ASPIRIN [Concomitant]
     Active Substance: ASPIRIN
  13. CITALOPRAM [Concomitant]
     Active Substance: CITALOPRAM HYDROBROMIDE
  14. FUROSEMIDE [Concomitant]
     Active Substance: FUROSEMIDE
  15. HUMULIN 70/30 [Concomitant]
     Active Substance: INSULIN HUMAN
  16. METOPROLOL [Concomitant]
     Active Substance: METOPROLOL
  17. FLOVENT [Concomitant]
     Active Substance: FLUTICASONE PROPIONATE
  18. ALBUTEROL [Concomitant]
     Active Substance: ALBUTEROL
  19. HYDROCORTISONE [Concomitant]
     Active Substance: HYDROCORTISONE
  20. CETIRIZINE [Concomitant]
     Active Substance: CETIRIZINE HYDROCHLORIDE

REACTIONS (7)
  - Gastrointestinal disorder [Unknown]
  - Ascites [Unknown]
  - Diarrhoea [Unknown]
  - Nausea [Unknown]
  - Vomiting [Unknown]
  - Abdominal pain [Unknown]
  - Drug intolerance [Unknown]
